FAERS Safety Report 9296531 (Version 1)
Quarter: 2013Q2

REPORT INFORMATION
  Report Type: Report from Study
  Country: US (occurrence: US)
  Receive Date: 20130517
  Receipt Date: 20130517
  Transmission Date: 20140414
  Serious: Yes (Hospitalization, Other)
  Sender: FDA-Public Use
  Company Number: US-ABBOTT-13P-163-1089601-00

PATIENT
  Age: 57 Year
  Sex: Male
  Weight: 89.89 kg

DRUGS (6)
  1. HUMIRA [Suspect]
     Indication: PSORIATIC ARTHROPATHY
     Dates: start: 2006
  2. LISINOPRIL [Concomitant]
     Indication: HYPERTENSION
  3. MOBIC [Concomitant]
     Indication: PSORIATIC ARTHROPATHY
  4. ZANTAC [Concomitant]
     Indication: GASTROOESOPHAGEAL REFLUX DISEASE
  5. LIPITOR [Concomitant]
     Indication: BLOOD CHOLESTEROL INCREASED
  6. VICODIN [Concomitant]
     Indication: PSORIATIC ARTHROPATHY
     Dosage: 5/500 MG

REACTIONS (6)
  - Heat stroke [Recovered/Resolved]
  - Localised oedema [Recovered/Resolved]
  - Cerebrovascular accident [Recovered/Resolved]
  - Dizziness [Recovered/Resolved]
  - Hypokinesia [Not Recovered/Not Resolved]
  - Headache [Recovered/Resolved]
